FAERS Safety Report 13983025 (Version 3)
Quarter: 2020Q2

REPORT INFORMATION
  Report Type: Spontaneous
  Country: VE (occurrence: VE)
  Receive Date: 20170918
  Receipt Date: 20200622
  Transmission Date: 20200713
  Serious: Yes (Other)
  Sender: FDA-Public Use
  Company Number: VE-BRISTOL-MYERS SQUIBB COMPANY-BMS-2017-082443

PATIENT
  Sex: Female
  Weight: 60 kg

DRUGS (1)
  1. OPDIVO [Suspect]
     Active Substance: NIVOLUMAB
     Indication: HODGKIN^S DISEASE
     Dosage: 180 MG, Q2WK
     Route: 042
     Dates: start: 2016, end: 2017

REACTIONS (2)
  - Intentional product use issue [Unknown]
  - Bone marrow disorder [Unknown]
